FAERS Safety Report 8549915-3 (Version None)
Quarter: 2012Q3

REPORT INFORMATION
  Report Type: 
  Country: None (occurrence: None)
  Receive Date: 20120730
  Receipt Date: 20120524
  Transmission Date: 20120928
  Serious: No
  Sender: FDA-Public Use
  Company Number: US-GLAXOSMITHKLINE-A0978900A

PATIENT
  Age: 41 Year
  Sex: Male

DRUGS (7)
  1. CLONAZEPAM [Concomitant]
  2. OXYCONTIN [Concomitant]
  3. TIZANIDINE HCL [Concomitant]
  4. MELATONIN [Concomitant]
  5. FLONASE [Concomitant]
  6. METHADONE [Concomitant]
  7. IMITREX [Suspect]
     Indication: MIGRAINE
     Dosage: 100MG PER DAY
     Route: 048
     Dates: start: 20120518, end: 20120522

REACTIONS (3)
  - HEADACHE [None]
  - WEIGHT DECREASED [None]
  - ALVEOLAR OSTEITIS [None]
